FAERS Safety Report 4597664-9 (Version None)
Quarter: 2005Q1

REPORT INFORMATION
  Report Type: 
  Country: None (occurrence: None)
  Receive Date: 20050303
  Receipt Date: 20050223
  Transmission Date: 20050727
  Serious: Yes (Hospitalization)
  Sender: FDA-Public Use
  Company Number: FR-GLAXOSMITHKLINE-B0373160A

PATIENT
  Age: 51 Year
  Sex: Male

DRUGS (2)
  1. MALARONE [Suspect]
     Indication: MALARIA
     Dosage: 4TAB PER DAY
     Route: 048
     Dates: start: 20041001
  2. SAVARINE [Concomitant]
     Indication: MALARIA PROPHYLAXIS
     Route: 065
     Dates: end: 20040826

REACTIONS (6)
  - ASTHENIA [None]
  - CHILLS [None]
  - DRUG INEFFECTIVE [None]
  - HYPERHIDROSIS [None]
  - MALARIA [None]
  - PYREXIA [None]
